FAERS Safety Report 9637673 (Version 2)
Quarter: 2013Q4

REPORT INFORMATION
  Report Type: Spontaneous
  Country: US (occurrence: US)
  Receive Date: 20131022
  Receipt Date: 20131115
  Transmission Date: 20140711
  Serious: Yes (Other)
  Sender: FDA-Public Use
  Company Number: US-TEVA-438447USA

PATIENT
  Age: 2 Month
  Sex: Male

DRUGS (13)
  1. DAUNORUBICIN [Suspect]
     Dosage: FIRST DOSE
     Dates: start: 20130930
  2. DAUNORUBICIN [Suspect]
     Dosage: SECOND DOSE
     Dates: start: 20131001
  3. DAUNORUBICIN [Suspect]
     Dosage: THIRD DOSE
     Dates: start: 20131002
  4. VINCRISTINE [Suspect]
     Dosage: DAY 1 AND 8
     Route: 042
  5. ONCASPAR [Suspect]
     Dosage: DAY 3
     Route: 030
     Dates: start: 20131002
  6. PREDNISONE [Suspect]
     Dosage: 100 MILLIGRAM DAILY; DAYS 1-14
  7. ONDANSETRON [Concomitant]
     Dosage: PRN
  8. OXYCODONE [Concomitant]
     Dosage: PRN
  9. PANTOPRAZOLE [Concomitant]
     Dosage: 40 MILLIGRAM DAILY;
  10. SENOKOT-S [Concomitant]
     Dosage: PRN
  11. SERTRALINE [Concomitant]
     Dosage: 50 MILLIGRAM DAILY;
  12. BACTRIM DS [Concomitant]
     Dosage: TUES/FRI
  13. ZOLPIDEM [Concomitant]
     Dosage: PRN

REACTIONS (1)
  - Subclavian artery thrombosis [Recovering/Resolving]
